FAERS Safety Report 19475324 (Version 2)
Quarter: 2021Q3

REPORT INFORMATION
  Report Type: Spontaneous
  Country: JP (occurrence: JP)
  Receive Date: 20210629
  Receipt Date: 20210707
  Transmission Date: 20211014
  Serious: Yes (Death, Hospitalization, Other)
  Sender: FDA-Public Use
  Company Number: JP-009507513-2106JPN002243J

PATIENT
  Age: 74 Year
  Sex: Male

DRUGS (3)
  1. KEYTRUDA [Suspect]
     Active Substance: PEMBROLIZUMAB
     Indication: LUNG ADENOCARCINOMA
     Dosage: 200 MILLIGRAM, Q3W
     Route: 041
     Dates: start: 202105, end: 202106
  2. CARBOPLATIN. [Concomitant]
     Active Substance: CARBOPLATIN
     Indication: LUNG ADENOCARCINOMA
     Dosage: AUC6, Q3W
     Route: 041
     Dates: start: 202105, end: 202106
  3. PACLITAXEL ALBUMIN [Concomitant]
     Active Substance: PACLITAXEL
     Indication: LUNG ADENOCARCINOMA
     Dosage: 100 MILLIGRAM/SQ. METER, Q3W
     Route: 041
     Dates: start: 202105, end: 202106

REACTIONS (2)
  - Chronic obstructive pulmonary disease [Unknown]
  - Death [Fatal]

NARRATIVE: CASE EVENT DATE: 202106
